FAERS Safety Report 10082262 (Version 1)
Quarter: 2014Q2

REPORT INFORMATION
  Report Type: Spontaneous
  Country: US (occurrence: US)
  Receive Date: 20140416
  Receipt Date: 20140416
  Transmission Date: 20141212
  Serious: Yes (Death, Life-Threatening, Other)
  Sender: FDA-Public Use
  Company Number: US-ROXANE LABORATORIES, INC.-2014-RO-00599RO

PATIENT
  Age: 4 Year
  Sex: Male

DRUGS (3)
  1. EQUINE ANTITHYMOCYTE GLOBULIN [Suspect]
     Indication: PROPHYLAXIS AGAINST TRANSPLANT REJECTION
     Route: 065
  2. CYCLOPHOSPHAMIDE TABLETS USP [Suspect]
     Indication: PROPHYLAXIS AGAINST TRANSPLANT REJECTION
     Route: 065
  3. BUSULFAN [Suspect]
     Indication: PROPHYLAXIS AGAINST TRANSPLANT REJECTION
     Route: 065

REACTIONS (13)
  - Cardiotoxicity [Fatal]
  - Cardiac arrest [Recovered/Resolved]
  - Hypoxia [Unknown]
  - Dyspnoea [Unknown]
  - Cardiomegaly [Unknown]
  - Pulmonary oedema [Unknown]
  - Hypotension [Unknown]
  - Convulsion [Unknown]
  - Subdural haemorrhage [Unknown]
  - Cerebral haemorrhage [Unknown]
  - Renal failure [Unknown]
  - Brain injury [Unknown]
  - Pyrexia [Unknown]
